FAERS Safety Report 11277816 (Version 4)
Quarter: 2015Q4

REPORT INFORMATION
  Report Type: Report from Study
  Country: US (occurrence: US)
  Receive Date: 20150716
  Receipt Date: 20151119
  Transmission Date: 20160304
  Serious: Yes (Death, Hospitalization)
  Sender: FDA-Public Use
  Company Number: US-ACTELION-A-US2015-120857

PATIENT
  Age: 16 Month
  Sex: Male

DRUGS (40)
  1. TRACLEER [Suspect]
     Active Substance: BOSENTAN
     Indication: PULMONARY ARTERIAL HYPERTENSION
     Dosage: 8 MG, BID
     Route: 048
  2. HYDROCHLOROTHIAZIDE. [Concomitant]
     Active Substance: HYDROCHLOROTHIAZIDE
     Dosage: 10 MG, BID
  3. NYSTATIN. [Concomitant]
     Active Substance: NYSTATIN
  4. VECURONIUM [Concomitant]
     Active Substance: VECURONIUM BROMIDE
  5. NICARDIPINE [Concomitant]
     Active Substance: NICARDIPINE
  6. PULMICORT TURBUHALER [Concomitant]
     Active Substance: BUDESONIDE
     Dosage: 0.25 MG, BID
  7. LASIX [Concomitant]
     Active Substance: FUROSEMIDE
     Dosage: 10 MG, BID
  8. SPIRONOLACTONE. [Concomitant]
     Active Substance: SPIRONOLACTONE
  9. HEPARIN [Concomitant]
     Active Substance: HEPARIN SODIUM
  10. SODIUM CHLORIDE. [Concomitant]
     Active Substance: SODIUM CHLORIDE
  11. ACETAMINOPHEN. [Concomitant]
     Active Substance: ACETAMINOPHEN
  12. DOCUSATE [Concomitant]
     Active Substance: DOCUSATE
  13. TROPHAMINE [Concomitant]
     Active Substance: ALANINE\ARGININE\ASPARTIC ACID\CYSTEINE HYDROCHLORIDE\GLUTAMIC ACID\GLYCINE\HISTIDINE\ISOLEUCINE\LEUCINE\LYSINE ACETATE\METHIONINE\N-ACETYL-TYROSINE\PHENYLALANINE\PROLINE\SERINE\TAURINE\THREONINE\TRYPTOPHAN\TYROSINE\VALINE
  14. POTASSIUM CHLORIDE. [Concomitant]
     Active Substance: POTASSIUM CHLORIDE
     Dosage: 10 MEQ, BID
  15. IBUPROFEN. [Concomitant]
     Active Substance: IBUPROFEN
  16. IPRATROPIUM [Concomitant]
     Active Substance: IPRATROPIUM
  17. FENTANYL. [Concomitant]
     Active Substance: FENTANYL
  18. SILDENAFIL. [Concomitant]
     Active Substance: SILDENAFIL
     Dosage: 8 MG, BID
  19. ZINC OXIDE. [Concomitant]
     Active Substance: ZINC OXIDE
  20. CALCIUM GLUCONATE. [Concomitant]
     Active Substance: CALCIUM GLUCONATE
  21. LACRILUBE [Concomitant]
  22. TRACLEER [Suspect]
     Active Substance: BOSENTAN
     Dosage: 9 MG, BID
     Route: 048
     Dates: end: 20151014
  23. ALDACTONE [Concomitant]
     Active Substance: SPIRONOLACTONE
     Dosage: 2 MG, BID
  24. PROTONIX [Concomitant]
     Active Substance: PANTOPRAZOLE SODIUM
  25. VERSED [Concomitant]
     Active Substance: MIDAZOLAM HYDROCHLORIDE
  26. MILRINONE [Concomitant]
     Active Substance: MILRINONE
  27. MULTIVITAMIN [Concomitant]
     Active Substance: VITAMINS
     Dosage: 1 ML, QD
  28. MONTELUKAST [Concomitant]
     Active Substance: MONTELUKAST SODIUM
  29. ALBUTEROL. [Concomitant]
     Active Substance: ALBUTEROL
  30. MEROPENEM. [Concomitant]
     Active Substance: MEROPENEM
  31. MICAFUNGIN [Concomitant]
     Active Substance: MICAFUNGIN
  32. MAGNESIUM SULFATE. [Concomitant]
     Active Substance: MAGNESIUM SULFATE
  33. DEXTROSE. [Concomitant]
     Active Substance: DEXTROSE
  34. DOPAMINE [Concomitant]
     Active Substance: DOPAMINE\DOPAMINE HYDROCHLORIDE
  35. LANSOPRAZOLE. [Concomitant]
     Active Substance: LANSOPRAZOLE
     Dosage: 9 MG, QD
  36. TOBRAMYCIN. [Concomitant]
     Active Substance: TOBRAMYCIN
  37. BUDESONIDE. [Concomitant]
     Active Substance: BUDESONIDE
  38. MULTIVITAMIN AND MINERAL SUPPLEMENT [Concomitant]
     Active Substance: MINERALS\VITAMINS
  39. METHYLPREDNISOLONE. [Concomitant]
     Active Substance: METHYLPREDNISOLONE
  40. BENADRYL [Concomitant]
     Active Substance: DIPHENHYDRAMINE HYDROCHLORIDE

REACTIONS (10)
  - Bronchopulmonary dysplasia [Fatal]
  - Respiratory distress [Not Recovered/Not Resolved]
  - General physical health deterioration [Unknown]
  - Increased bronchial secretion [Unknown]
  - Flatulence [Unknown]
  - Pulmonary hypertension [Fatal]
  - Pyrexia [Unknown]
  - Dyspnoea [Unknown]
  - Acute respiratory failure [Fatal]
  - Myocardial infarction [Unknown]

NARRATIVE: CASE EVENT DATE: 20150907
